FAERS Safety Report 18215034 (Version 6)
Quarter: 2021Q1

REPORT INFORMATION
  Report Type: Report from Study
  Country: EC (occurrence: EC)
  Receive Date: 20200831
  Receipt Date: 20210105
  Transmission Date: 20210419
  Serious: Yes (Hospitalization, Other)
  Sender: FDA-Public Use
  Company Number: PHHY2019EC165891

PATIENT
  Age: 69 Year
  Sex: Male

DRUGS (10)
  1. TASIGNA [Suspect]
     Active Substance: NILOTINIB
     Indication: CHRONIC MYELOID LEUKAEMIA
     Dosage: 200 MG, QD
     Route: 048
     Dates: start: 20180914, end: 20180927
  2. TASIGNA [Suspect]
     Active Substance: NILOTINIB
     Dosage: 600 MG, (MONDAYS 200 MG, WEDNESDAYS 200 MG, FRIDAYS 200 MG)
     Route: 048
     Dates: start: 20190902, end: 20191001
  3. TASIGNA [Suspect]
     Active Substance: NILOTINIB
     Dosage: 200 MG, Q48H
     Route: 048
     Dates: start: 20190731, end: 20190829
  4. TASIGNA [Suspect]
     Active Substance: NILOTINIB
     Dosage: 200 MG, Q48H
     Route: 048
     Dates: start: 20190412, end: 20190507
  5. TASIGNA [Suspect]
     Active Substance: NILOTINIB
     Dosage: 400 MG (MONDAY 200 MG AND FRIDAYS 200 MG)
     Route: 048
     Dates: start: 20191107, end: 20200511
  6. TASIGNA [Suspect]
     Active Substance: NILOTINIB
     Dosage: 200 MG, Q48H
     Route: 048
     Dates: start: 20180928, end: 20190111
  7. TASIGNA [Suspect]
     Active Substance: NILOTINIB
     Dosage: 200 MG, QD
     Route: 048
     Dates: start: 20190112, end: 20190411
  8. TASIGNA [Suspect]
     Active Substance: NILOTINIB
     Dosage: 200 MG, QD
     Route: 048
     Dates: start: 20190508, end: 20190703
  9. TASIGNA [Suspect]
     Active Substance: NILOTINIB
     Dosage: 400 MG (WEDNESDAYS 200 MG AND SATURDAY 200 MG)
     Route: 048
     Dates: start: 20191002, end: 20191102
  10. TASIGNA [Suspect]
     Active Substance: NILOTINIB
     Dosage: 400 MG (MONDAY 200 MG AND FRIDAYS 200 MG)
     Route: 048
     Dates: start: 20201015, end: 20201203

REACTIONS (9)
  - Therapy non-responder [Unknown]
  - COVID-19 [Unknown]
  - Chronic myeloid leukaemia [Not Recovered/Not Resolved]
  - Decreased immune responsiveness [Unknown]
  - Malignant neoplasm progression [Not Recovered/Not Resolved]
  - Pain in extremity [Unknown]
  - Product supply issue [Unknown]
  - Inappropriate schedule of product administration [Unknown]
  - Depression [Not Recovered/Not Resolved]

NARRATIVE: CASE EVENT DATE: 20180914
